FAERS Safety Report 12356547 (Version 3)
Quarter: 2016Q4

REPORT INFORMATION
  Report Type: Report from Study
  Country: GB (occurrence: GB)
  Receive Date: 20160511
  Receipt Date: 20161010
  Transmission Date: 20170207
  Serious: Yes (Other)
  Sender: FDA-Public Use
  Company Number: PHHY2015GB004116

PATIENT
  Age: 34 Year
  Sex: Female

DRUGS (1)
  1. GILENYA [Suspect]
     Active Substance: FINGOLIMOD HYDROCHLORIDE
     Indication: MULTIPLE SCLEROSIS
     Dosage: UNK UNK, QD
     Route: 048
     Dates: start: 20130814, end: 20151117

REACTIONS (11)
  - Cognitive disorder [Unknown]
  - White blood cell count increased [Unknown]
  - Peroneal nerve palsy [Unknown]
  - White blood cell count decreased [Unknown]
  - Arthralgia [Unknown]
  - Paraesthesia [Unknown]
  - Burning sensation [Unknown]
  - Pharyngitis [Unknown]
  - Nystagmus [Unknown]
  - Kidney infection [Recovered/Resolved]
  - Muscle spasms [Unknown]

NARRATIVE: CASE EVENT DATE: 20140425
